FAERS Safety Report 4366286-7 (Version None)
Quarter: 2004Q2

REPORT INFORMATION
  Report Type: 
  Country: None (occurrence: None)
  Receive Date: 20040524
  Receipt Date: 20040302
  Transmission Date: 20050107
  Serious: No
  Sender: FDA-Public Use
  Company Number: SU-2004-002193

PATIENT
  Age: 47 Year
  Sex: Male
  Weight: 102.0593 kg

DRUGS (7)
  1. BENICAR [Suspect]
     Indication: HYPERTENSION
     Dosage: 20 MG QD PO
     Route: 048
     Dates: start: 20040215
  2. METFORMIN [Concomitant]
  3. ACTOS [Concomitant]
  4. LIPITOR [Concomitant]
  5. LITHIUM CARBONATE [Concomitant]
  6. NORTRIPTYLINE HCL [Concomitant]
  7. LAMICTAL [Concomitant]

REACTIONS (1)
  - RASH [None]
